FAERS Safety Report 7875768-2 (Version None)
Quarter: 2011Q4

REPORT INFORMATION
  Report Type: 
  Country: None (occurrence: None)
  Receive Date: 20111031
  Receipt Date: 20111020
  Transmission Date: 20120403
  Serious: Yes (Other)
  Sender: FDA-Public Use
  Company Number: CA-ASTRAZENECA-2011SE63522

PATIENT
  Sex: Male

DRUGS (4)
  1. LIPITOR [Concomitant]
  2. CRESTOR [Suspect]
     Route: 048
     Dates: start: 20111001
  3. CRESTOR [Suspect]
     Route: 048
  4. HERBAL MEDICATION [Concomitant]

REACTIONS (2)
  - MALAISE [None]
  - PLATELET COUNT DECREASED [None]
